FAERS Safety Report 23075254 (Version 1)
Quarter: 2023Q4

REPORT INFORMATION
  Report Type: Spontaneous
  Country: US (occurrence: US)
  Receive Date: 20231017
  Receipt Date: 20231017
  Transmission Date: 20240110
  Serious: No
  Sender: FDA-Public Use
  Company Number: US-SA-2020SA341985

PATIENT
  Age: 61 Year
  Sex: Male
  Weight: 69.8 kg

DRUGS (1)
  1. DUPIXENT [Suspect]
     Active Substance: DUPILUMAB
     Indication: Dermatitis atopic
     Dosage: 300 MG, QOW
     Route: 058
     Dates: start: 20191118

REACTIONS (4)
  - Eye discharge [Unknown]
  - Skin exfoliation [Unknown]
  - Dry eye [Unknown]
  - Conjunctivitis [Unknown]
